FAERS Safety Report 13001370 (Version 2)
Quarter: 2016Q4

REPORT INFORMATION
  Report Type: Spontaneous
  Country: JP (occurrence: JP)
  Receive Date: 20161206
  Receipt Date: 20161222
  Transmission Date: 20170207
  Serious: Yes (Hospitalization, Congenital Anomaly, Other)
  Sender: FDA-Public Use
  Company Number: JP-ASTELLAS-2016JP020785

PATIENT
  Age: 0 Day
  Sex: Male
  Weight: 1.7 kg

DRUGS (19)
  1. MYSLEE [Suspect]
     Active Substance: ZOLPIDEM TARTRATE
     Indication: INSOMNIA
     Route: 064
     Dates: start: 20120312, end: 20120712
  2. PREDNISOLONE. [Concomitant]
     Active Substance: PREDNISOLONE
     Indication: SYSTEMIC LUPUS ERYTHEMATOSUS
     Route: 063
     Dates: start: 20120712
  3. BAYASPIRIN [Concomitant]
     Active Substance: ASPIRIN
     Indication: LUPUS NEPHRITIS
     Route: 064
     Dates: start: 20120204, end: 20120712
  4. MAGLAX [Concomitant]
     Active Substance: MAGNESIUM OXIDE
     Indication: CONSTIPATION
     Route: 064
     Dates: start: 20120327, end: 20120712
  5. PROGRAF [Suspect]
     Active Substance: TACROLIMUS\TACROLIMUS ANHYDROUS
     Indication: LUPUS NEPHRITIS
     Route: 064
     Dates: end: 20120712
  6. ISODINE [Concomitant]
     Active Substance: POVIDONE-IODINE
     Indication: PROPHYLAXIS
     Dosage: 5 DROPS/DAY, TWICE DAILY
     Route: 064
     Dates: start: 20120309, end: 20120712
  7. HEPARIN NATRIUM [Concomitant]
     Indication: SYSTEMIC LUPUS ERYTHEMATOSUS
  8. UTEMERIN [Concomitant]
     Active Substance: RITODRINE
     Indication: THREATENED LABOUR
     Route: 064
     Dates: start: 20120703
  9. PREDNISOLONE. [Concomitant]
     Active Substance: PREDNISOLONE
     Indication: LUPUS NEPHRITIS
     Route: 064
     Dates: end: 20120712
  10. MYSLEE [Suspect]
     Active Substance: ZOLPIDEM TARTRATE
     Route: 063
     Dates: start: 20120712
  11. FUNGIZONE [Concomitant]
     Active Substance: AMPHOTERICIN B
     Indication: PROPHYLAXIS
     Dosage: SEVERAL DROPS/DAY, THRICE DAILY
     Route: 064
     Dates: start: 20120309, end: 20120712
  12. ISODINE [Concomitant]
     Active Substance: POVIDONE-IODINE
     Dosage: 5 DROPS/DAY, TWICE DAILY
     Route: 063
     Dates: start: 20120712
  13. BAYASPIRIN [Concomitant]
     Active Substance: ASPIRIN
     Indication: SYSTEMIC LUPUS ERYTHEMATOSUS
     Route: 063
     Dates: start: 20120712
  14. PROGRAF [Suspect]
     Active Substance: TACROLIMUS\TACROLIMUS ANHYDROUS
     Indication: SYSTEMIC LUPUS ERYTHEMATOSUS
     Route: 063
     Dates: start: 20120712
  15. MAGLAX [Concomitant]
     Active Substance: MAGNESIUM OXIDE
     Route: 063
     Dates: start: 20120712
  16. HUMALOG [Concomitant]
     Active Substance: INSULIN LISPRO
     Indication: DIABETES MELLITUS
     Dosage: 82IU/DAY, THRICE DAILY
     Route: 064
     Dates: start: 20120420, end: 20120712
  17. HEPARIN NATRIUM [Concomitant]
     Indication: LUPUS NEPHRITIS
     Route: 064
     Dates: start: 20120204, end: 20120712
  18. FUNGIZONE [Concomitant]
     Active Substance: AMPHOTERICIN B
     Dosage: SEVERAL DROPS/DAY, THRICE DAILY
     Route: 063
     Dates: start: 20120712
  19. UTEMERIN [Concomitant]
     Active Substance: RITODRINE
     Indication: THREATENED LABOUR
     Route: 064
     Dates: end: 20120712

REACTIONS (3)
  - Exposure during breast feeding [Unknown]
  - Ventricular septal defect [Recovered/Resolved]
  - Congenital hydronephrosis [Recovered/Resolved]

NARRATIVE: CASE EVENT DATE: 20120712
